FAERS Safety Report 23949132 (Version 3)
Quarter: 2024Q2

REPORT INFORMATION
  Report Type: Spontaneous
  Country: US (occurrence: US)
  Receive Date: 20240607
  Receipt Date: 20240614
  Transmission Date: 20240716
  Serious: Yes (Other)
  Sender: FDA-Public Use
  Company Number: US-UCBSA-2024027161

PATIENT
  Sex: Female

DRUGS (1)
  1. NEUPRO [Suspect]
     Active Substance: ROTIGOTINE
     Indication: Restless legs syndrome
     Dosage: 1 DOSAGE FORM (1 PATCH 2 MILLIGRAM) ONCE DAILY (QD)
     Route: 062
     Dates: start: 20240525, end: 20240527

REACTIONS (12)
  - Syncope [Unknown]
  - Restless legs syndrome [Unknown]
  - Fall [Unknown]
  - Contusion [Recovering/Resolving]
  - Musculoskeletal stiffness [Recovering/Resolving]
  - Insomnia [Unknown]
  - Restless arm syndrome [Unknown]
  - Fatigue [Unknown]
  - Dizziness [Unknown]
  - Somnolence [Unknown]
  - Product adhesion issue [Unknown]
  - Wrong technique in product usage process [Unknown]

NARRATIVE: CASE EVENT DATE: 20240101
